FAERS Safety Report 24078608 (Version 1)
Quarter: 2024Q3

REPORT INFORMATION
  Report Type: Spontaneous
  Country: PL (occurrence: None)
  Receive Date: 20240711
  Receipt Date: 20240711
  Transmission Date: 20241016
  Serious: Yes (Hospitalization)
  Sender: ASTRAZENECA
  Company Number: 2024A134019

PATIENT
  Age: 78 Year
  Sex: Male

DRUGS (7)
  1. METOPROLOL [Suspect]
     Active Substance: METOPROLOL
     Indication: Ventricular tachycardia
     Dosage: UNK
  2. DAPAGLIFLOZIN [Suspect]
     Active Substance: DAPAGLIFLOZIN
     Indication: Ventricular tachycardia
     Dosage: UNK
     Route: 048
  3. AMIODARONE [Suspect]
     Active Substance: AMIODARONE
     Indication: Ventricular tachycardia
     Dosage: UNK
  4. SACUBITRIL\VALSARTAN [Suspect]
     Active Substance: SACUBITRIL\VALSARTAN
     Indication: Ventricular tachycardia
     Dosage: UNK
  5. EPLERENONE [Suspect]
     Active Substance: EPLERENONE
     Indication: Ventricular tachycardia
     Dosage: UNK
  6. MAGNESIUM [Suspect]
     Active Substance: MAGNESIUM
     Indication: Ventricular tachycardia
     Dosage: UNK
  7. POTASSIUM [Suspect]
     Active Substance: POTASSIUM
     Indication: Ventricular tachycardia
     Dosage: UNK

REACTIONS (3)
  - Arrhythmic storm [Recovered/Resolved]
  - Ventricular fibrillation [Recovered/Resolved]
  - Drug ineffective [Recovered/Resolved]
